FAERS Safety Report 7692455-4 (Version None)
Quarter: 2011Q3

REPORT INFORMATION
  Report Type: 
  Country: None (occurrence: None)
  Receive Date: 20110818
  Receipt Date: 20110810
  Transmission Date: 20111222
  Serious: Yes (Other)
  Sender: FDA-Public Use
  Company Number: US-RB-031353-11

PATIENT
  Age: 61 Year
  Sex: Male

DRUGS (4)
  1. SUBOXONE [Suspect]
     Dosage: SUBLINGUAL FILM
     Route: 060
     Dates: start: 20110101, end: 20110101
  2. SUBOXONE [Suspect]
     Dosage: SUBLINGUAL FILM- SELF TAPERING
     Route: 060
     Dates: start: 20110101
  3. SUBOXONE [Suspect]
     Indication: DRUG DEPENDENCE
     Dosage: 1-2 MG DAILY
     Route: 060
     Dates: end: 20110301
  4. SUBOXONE [Suspect]
     Indication: DRUG DEPENDENCE
     Dosage: SUBLINGUAL FILM
     Route: 060
     Dates: start: 20110601, end: 20110101

REACTIONS (5)
  - HEPATIC NEOPLASM MALIGNANT [None]
  - ANXIETY [None]
  - MEMORY IMPAIRMENT [None]
  - ABNORMAL BEHAVIOUR [None]
  - UNDERDOSE [None]
